FAERS Safety Report 9076156 (Version 1)
Quarter: 2013Q1

REPORT INFORMATION
  Report Type: Report from Study
  Country: PR (occurrence: PR)
  Receive Date: 20130129
  Receipt Date: 20130129
  Transmission Date: 20140127
  Serious: Yes (Hospitalization)
  Sender: FDA-Public Use
  Company Number: PR-ABBOTT-12P-131-0917060-00

PATIENT
  Sex: Male
  Weight: 108.96 kg

DRUGS (3)
  1. HUMIRA 40 MG/0.8 ML PEN [Suspect]
     Indication: HIDRADENITIS
     Route: 058
     Dates: start: 201103, end: 201203
  2. DIOVAN [Concomitant]
     Indication: HYPERTENSION
     Route: 048
  3. TEKTURNA [Concomitant]
     Indication: HYPERTENSION
     Route: 048

REACTIONS (3)
  - Abscess [Recovering/Resolving]
  - Hidradenitis [Recovering/Resolving]
  - Bacterial infection [Recovering/Resolving]
